FAERS Safety Report 8165661-2 (Version None)
Quarter: 2012Q1

REPORT INFORMATION
  Report Type: 
  Country: None (occurrence: None)
  Receive Date: 20120227
  Receipt Date: 20120213
  Transmission Date: 20120608
  Serious: Yes (Other)
  Sender: FDA-Public Use
  Company Number: FR-BRISTOL-MYERS SQUIBB COMPANY-16397994

PATIENT
  Age: 50 Year
  Sex: Male

DRUGS (7)
  1. METOPROLOL TARTRATE [Suspect]
  2. SIMVASTATIN [Interacting]
  3. ENALAPRIL MALEATE [Suspect]
  4. HEPARIN SODIUM [Suspect]
  5. ACETYLSALICYLIC ACID SRT [Suspect]
  6. ATENOLOL AND CHLORTHALIDONE [Interacting]
     Dosage: LOADING DOSE OF 300MG
     Route: 048
  7. LAMOTRGINE [Suspect]

REACTIONS (2)
  - DRUG INTERACTION [None]
  - THROMBOTIC THROMBOCYTOPENIC PURPURA [None]
